FAERS Safety Report 17930745 (Version 1)
Quarter: 2020Q2

REPORT INFORMATION
  Report Type: Spontaneous
  Country: ES (occurrence: ES)
  Receive Date: 20200623
  Receipt Date: 20200623
  Transmission Date: 20200714
  Serious: Yes (Hospitalization)
  Sender: FDA-Public Use
  Company Number: ES-TEVA-2020-ES-1789674

PATIENT
  Age: 82 Year
  Sex: Female

DRUGS (7)
  1. APOCARD 100 MG COMPRIMIDOS , 60 COMPRIMIDOS [Concomitant]
     Active Substance: FLECAINIDE ACETATE
     Indication: CARDIAC DISORDER
     Dosage: 100 MG
     Route: 048
     Dates: start: 20130604
  2. OMEPRAZOL SANDOZ FARMACEUTICA 20 MG CAPSULAS DURAS GASTRORRESISTENTES [Concomitant]
     Indication: PRODUCT USED FOR UNKNOWN INDICATION
     Dosage: 20 MG
     Route: 048
     Dates: start: 20130902
  3. SERTRALINA 50 MG 30 COMPRIMIDOS [Concomitant]
     Active Substance: SERTRALINE HYDROCHLORIDE
     Indication: DEPRESSION
     Dosage: 50 MG
     Route: 048
     Dates: start: 20191120
  4. TRAMADOL/PARACETAMOL 75 MG/650 MG 60 COMPRIMIDOS [Suspect]
     Active Substance: ACETAMINOPHEN\TRAMADOL
     Indication: OSTEOARTHRITIS
     Dosage: 1 DOSAGE FORMS
     Route: 048
     Dates: start: 20160307
  5. LETROZOL 2,5 MG 30 COMPRIMIDOS [Concomitant]
     Active Substance: LETROZOLE
     Indication: BREAST CANCER FEMALE
     Dosage: 2.5 MG
     Route: 048
     Dates: start: 20150522
  6. ZOLPIDEM [Suspect]
     Active Substance: ZOLPIDEM TARTRATE
     Indication: INSOMNIA
     Dosage: 10 MG
     Route: 048
     Dates: start: 20160614
  7. AMLODIPINO 5 MG 30 COMPRIMIDOS [Suspect]
     Active Substance: AMLODIPINE BESYLATE
     Indication: HYPERTENSION
     Dosage: 5 MG
     Route: 048
     Dates: start: 20140820

REACTIONS (2)
  - Syncope [Recovering/Resolving]
  - Fall [Recovering/Resolving]

NARRATIVE: CASE EVENT DATE: 20200601
